FAERS Safety Report 9820712 (Version 2)
Quarter: 2014Q1

REPORT INFORMATION
  Report Type: Spontaneous
  Country: IT (occurrence: IT)
  Receive Date: 20140116
  Receipt Date: 20140116
  Transmission Date: 20141002
  Serious: Yes (Death, Hospitalization, Other)
  Sender: FDA-Public Use
  Company Number: IT-ELI_LILLY_AND_COMPANY-IT201312009122

PATIENT
  Sex: Male

DRUGS (2)
  1. GEMZAR [Suspect]
     Indication: LUNG NEOPLASM MALIGNANT
     Dosage: 1872 MG, CYCLICAL
     Route: 042
     Dates: start: 20130405, end: 20130805
  2. CISPLATINO TEVA [Suspect]
     Indication: LUNG NEOPLASM MALIGNANT
     Dosage: 124.8 MG, CYCLICAL
     Route: 042
     Dates: start: 20130405, end: 20130805

REACTIONS (5)
  - Respiratory failure [Fatal]
  - Interstitial lung disease [Not Recovered/Not Resolved]
  - General physical health deterioration [Unknown]
  - Cachexia [Unknown]
  - Pulmonary hypertension [Unknown]
